FAERS Safety Report 14594495 (Version 1)
Quarter: 2018Q1

REPORT INFORMATION
  Report Type: Spontaneous
  Country: DE (occurrence: DE)
  Receive Date: 20180302
  Receipt Date: 20180302
  Transmission Date: 20180509
  Serious: Yes (Other)
  Sender: FDA-Public Use
  Company Number: DE-TEVA-2018-DE-861676

PATIENT
  Age: 70 Year
  Sex: Female

DRUGS (8)
  1. ENALAPRIL [Concomitant]
     Active Substance: ENALAPRIL
     Route: 048
  2. PANTOPRAZOL [Concomitant]
     Active Substance: PANTOPRAZOLE SODIUM
     Route: 048
  3. RISPERIDON [Suspect]
     Active Substance: RISPERIDONE
     Dosage: 1.5 MG/D
     Route: 048
     Dates: start: 20161031, end: 20161101
  4. QUILONUM RETARD [Concomitant]
     Active Substance: LITHIUM CARBONATE
     Route: 048
  5. REBOXETIN [Concomitant]
     Active Substance: REBOXETINE
     Route: 048
  6. ZOPICLON [Concomitant]
     Active Substance: ZOPICLONE
     Dosage: 7.5 MG/D
     Route: 048
  7. QUETIAPIN [Suspect]
     Active Substance: QUETIAPINE
     Route: 048
     Dates: start: 20161005, end: 20161106
  8. SIMVASTATIN. [Concomitant]
     Active Substance: SIMVASTATIN
     Route: 048

REACTIONS (1)
  - Thrombosis [Recovered/Resolved]

NARRATIVE: CASE EVENT DATE: 20161101
